FAERS Safety Report 21290021 (Version 3)
Quarter: 2023Q1

REPORT INFORMATION
  Report Type: Spontaneous
  Country: US (occurrence: US)
  Receive Date: 20220902
  Receipt Date: 20230123
  Transmission Date: 20230418
  Serious: Yes (Other)
  Sender: FDA-Public Use
  Company Number: US-BRISTOL-MYERS SQUIBB COMPANY-2022-098726

PATIENT
  Age: 33 Year
  Sex: Male

DRUGS (1)
  1. ZEPOSIA [Suspect]
     Active Substance: OZANIMOD HYDROCHLORIDE
     Indication: Multiple sclerosis
     Dosage: DOSE/AMOUNT AND FREQUENCY - 0.23 MG BY MOUTH 1 TIME A DAY FOR 4 DAYS THEN TAKE 0.46 MG BY MOUTH 1 TI
     Route: 048
     Dates: start: 202207

REACTIONS (4)
  - Multiple sclerosis relapse [Unknown]
  - Headache [Unknown]
  - Paraesthesia [Unknown]
  - Multiple sclerosis [Unknown]
